FAERS Safety Report 11025485 (Version 1)
Quarter: 2015Q2

REPORT INFORMATION
  Report Type: Spontaneous
  Country: IT (occurrence: None)
  Receive Date: 20150410
  Receipt Date: 20150410
  Transmission Date: 20150821
  Serious: Yes (Hospitalization)
  Sender: FDA-Public Use
  Company Number: 8019650

PATIENT
  Sex: Male

DRUGS (1)
  1. EUTIROX [Suspect]
     Active Substance: LEVOTHYROXINE SODIUM
     Indication: PRODUCT USED FOR UNKNOWN INDICATION
     Dosage: 1 COURSE

REACTIONS (4)
  - Cardiac flutter [None]
  - Feeling abnormal [None]
  - Cardiac disorder [None]
  - Cardiac fibrillation [None]
